FAERS Safety Report 23085174 (Version 1)
Quarter: 2023Q4

REPORT INFORMATION
  Report Type: Spontaneous
  Country: US (occurrence: None)
  Receive Date: 20231019
  Receipt Date: 20231019
  Transmission Date: 20240110
  Serious: Yes (Life-Threatening)
  Sender: FDA-Public Use
  Company Number: None

PATIENT
  Sex: Female
  Weight: 2.29 kg

DRUGS (1)
  1. BEYFORTUS [Suspect]
     Active Substance: NIRSEVIMAB-ALIP
     Indication: Respiratory syncytial virus infection
     Dosage: FREQUENCY : ONCE;?
     Route: 030
     Dates: start: 20231018, end: 20231018

REACTIONS (4)
  - Cyanosis [None]
  - Dyspnoea [None]
  - Poor feeding infant [None]
  - Jaundice [None]

NARRATIVE: CASE EVENT DATE: 20231019
